FAERS Safety Report 8463762-2 (Version None)
Quarter: 2012Q2

REPORT INFORMATION
  Report Type: 
  Country: None (occurrence: None)
  Receive Date: 20120625
  Receipt Date: 20120611
  Transmission Date: 20120825
  Serious: Yes (Hospitalization, Other)
  Sender: FDA-Public Use
  Company Number: IE-MEDIMMUNE-MEDI-0015269

PATIENT
  Sex: Female

DRUGS (6)
  1. LANSOPRAZOLE [Concomitant]
  2. FERROUS SULFATE TAB [Concomitant]
  3. BACLOFEN [Concomitant]
  4. LACTULOSE [Concomitant]
  5. SYNAGIS [Suspect]
     Indication: PREMATURE BABY
     Route: 030
     Dates: start: 20111007
  6. KAPSOVIT [Concomitant]

REACTIONS (5)
  - URINARY TRACT INFECTION [None]
  - NASOPHARYNGITIS [None]
  - INFANTILE SPASMS [None]
  - COUGH [None]
  - CEREBRAL DISORDER [None]
